FAERS Safety Report 18347062 (Version 5)
Quarter: 2020Q4

REPORT INFORMATION
  Report Type: Report from Study
  Country: None (occurrence: ES)
  Receive Date: 20201006
  Receipt Date: 20201016
  Transmission Date: 20210114
  Serious: Yes (Death, Hospitalization, Other)
  Sender: FDA-Public Use
  Company Number: ES-ABBVIE-20K-144-3587633-00

PATIENT
  Age: 82 Year
  Sex: Female

DRUGS (3)
  1. MOTILIUM [Concomitant]
     Active Substance: DOMPERIDONE
     Indication: PRODUCT USED FOR UNKNOWN INDICATION
     Route: 048
     Dates: start: 20200923
  2. DUODOPA [Suspect]
     Active Substance: CARBIDOPA\LEVODOPA
     Indication: PARKINSON^S DISEASE
     Dosage: CONTINUOUS DOSE 2.4 ML/H, 16HOURS/DAY,20 MG/ML 5 MG/ML
     Route: 050
     Dates: start: 20200311, end: 20201003
  3. DUODOPA [Suspect]
     Active Substance: CARBIDOPA\LEVODOPA

REACTIONS (10)
  - Pneumonia [Fatal]
  - Drug ineffective [Unknown]
  - COVID-19 [Fatal]
  - Stoma site discharge [Recovered/Resolved]
  - On and off phenomenon [Not Recovered/Not Resolved]
  - Parkinson^s disease [Unknown]
  - Unevaluable event [Unknown]
  - Critical illness [Unknown]
  - Hypophagia [Fatal]
  - Oxygen saturation decreased [Fatal]

NARRATIVE: CASE EVENT DATE: 2020
